FAERS Safety Report 25878463 (Version 1)
Quarter: 2025Q4

REPORT INFORMATION
  Report Type: Spontaneous
  Country: GB (occurrence: GB)
  Receive Date: 20251003
  Receipt Date: 20251003
  Transmission Date: 20260117
  Serious: Yes (Life-Threatening, Hospitalization, Other)
  Sender: NOVO NORDISK
  Company Number: None

PATIENT
  Age: 51 Year
  Sex: Female
  Weight: 160 kg

DRUGS (1)
  1. LIRAGLUTIDE [Suspect]
     Active Substance: LIRAGLUTIDE
     Indication: Weight control
     Dosage: UNK
     Dates: start: 20230103, end: 20231210

REACTIONS (2)
  - Pancreatitis necrotising [Recovered/Resolved with Sequelae]
  - Medication error [Unknown]

NARRATIVE: CASE EVENT DATE: 20231217
